FAERS Safety Report 4400794-5 (Version None)
Quarter: 2004Q3

REPORT INFORMATION
  Report Type: 
  Country: None (occurrence: None)
  Receive Date: 20040907
  Receipt Date: 20030610
  Transmission Date: 20050211
  Serious: No
  Sender: FDA-Public Use
  Company Number: US-BRISTOL-MYERS SQUIBB COMPANY-12297891

PATIENT
  Age: 79 Year
  Sex: Male
  Weight: 91 kg

DRUGS (3)
  1. COUMADIN [Suspect]
     Indication: HEART VALVE REPLACEMENT
     Dosage: CURRENT DOSE:  10 MG 3 DAYS A WEEK ALTERNATING WITH 9.5 MG THE OTHER 4 DAYS OF THE WEEK.
     Route: 048
     Dates: start: 19960401
  2. LIPITOR [Concomitant]
  3. NORVASC [Concomitant]

REACTIONS (1)
  - INTERNATIONAL NORMALISED RATIO DECREASED [None]
